FAERS Safety Report 9472827 (Version 2)
Quarter: 2013Q3

REPORT INFORMATION
  Report Type: Report from Study
  Country: NL (occurrence: NL)
  Receive Date: 20130823
  Receipt Date: 20130823
  Transmission Date: 20140515
  Serious: Yes (Hospitalization)
  Sender: FDA-Public Use
  Company Number: PHHO2008NL11676

PATIENT
  Age: 79 Year
  Sex: Male
  Weight: 113.6 kg

DRUGS (4)
  1. VOLTAREN [Suspect]
     Dosage: 25 MG, QD
     Route: 048
     Dates: start: 20080601, end: 20080926
  2. PLACEBO [Suspect]
     Indication: CARDIOVASCULAR DISORDER
     Dosage: NO TREATMENT
  3. PLACEBO [Suspect]
     Dates: start: 20081020
  4. FUROSEMIDE [Suspect]

REACTIONS (8)
  - Cardiac failure [Recovering/Resolving]
  - Renal failure [Recovering/Resolving]
  - Fluid retention [Recovering/Resolving]
  - Pneumonia [Recovering/Resolving]
  - Chronic obstructive pulmonary disease [Recovering/Resolving]
  - Weight increased [Recovering/Resolving]
  - Cough [Recovering/Resolving]
  - Pyrexia [Recovering/Resolving]
